FAERS Safety Report 20718647 (Version 1)
Quarter: 2022Q2

REPORT INFORMATION
  Report Type: Spontaneous
  Country: CA (occurrence: CA)
  Receive Date: 20220418
  Receipt Date: 20220418
  Transmission Date: 20220720
  Serious: Yes (Hospitalization)
  Sender: FDA-Public Use
  Company Number: CA-BAXTER-2022BAX007877

PATIENT
  Age: 6 Year
  Sex: Male

DRUGS (13)
  1. CYCLOPHOSPHAMIDE [Suspect]
     Active Substance: CYCLOPHOSPHAMIDE
     Indication: Leukaemia
     Dosage: DOSAGE FORM: NOT SPECIFIED
     Route: 042
  2. ETOPOSIDE [Suspect]
     Active Substance: ETOPOSIDE
     Indication: Leukaemia
     Dosage: DOSAGE FORM: NOT SPECIFIED
     Route: 042
  3. METHOTREXATE [Suspect]
     Active Substance: METHOTREXATE
     Indication: Chemotherapy
     Dosage: DOSAGE FORM: NOT REPORTED
     Route: 042
  4. ONDANSETRON [Concomitant]
     Active Substance: ONDANSETRON
     Indication: Nausea
     Dosage: DOSAGE FORM: NOT SPECIFIED
     Route: 042
  5. ONDANSETRON [Concomitant]
     Active Substance: ONDANSETRON
     Indication: Vomiting
  6. CASPOFUNGIN [Concomitant]
     Active Substance: CASPOFUNGIN
     Indication: Prophylaxis
     Dosage: DOSAGE FORM: NOT REPORTED
     Route: 042
  7. CYTARABINE [Concomitant]
     Active Substance: CYTARABINE
     Indication: Leukaemia
     Dosage: DOSAGE FORM: POWDER FOR SOLUTION INTRATHECAL
     Route: 037
  8. FLUCONAZOLE [Concomitant]
     Active Substance: FLUCONAZOLE
     Indication: Infection prophylaxis
     Dosage: DOSAGE FORM: NOT SPECIFIED
     Route: 048
  9. FLUDARABINE [Concomitant]
     Active Substance: FLUDARABINE PHOSPHATE
     Indication: Chemotherapy
     Dosage: DOSAGE FORM NOT REPORTED
     Route: 065
  10. LEVOFLOXACIN [Concomitant]
     Active Substance: LEVOFLOXACIN
     Indication: Infection prophylaxis
     Dosage: DOSAGE FORM: NOT SPECIFIED
     Route: 048
  11. POTASSIUM CHLORIDE [Concomitant]
     Active Substance: POTASSIUM CHLORIDE
     Indication: Hypokalaemia
     Dosage: DOSAGE FORM: NOT SPECIFIED
     Route: 042
  12. SULFAMETHOXAZOLE AND TRIMETHOPRIM [Concomitant]
     Active Substance: SULFAMETHOXAZOLE\TRIMETHOPRIM
     Indication: Pneumocystis jirovecii pneumonia
     Dosage: DOSAGE FORM: NOT SPECIFIED
     Route: 048
  13. VINCRISTINE [Concomitant]
     Active Substance: VINCRISTINE
     Indication: Leukaemia
     Dosage: DOSAGE FORM: NOT REPORTED
     Route: 042

REACTIONS (20)
  - Agitation [Recovered/Resolved]
  - Blood fibrinogen decreased [Recovered/Resolved]
  - Cytokine release syndrome [Recovered/Resolved]
  - Depressed level of consciousness [Recovered/Resolved]
  - Device related infection [Recovered/Resolved]
  - Left ventricular dysfunction [Recovered/Resolved]
  - Bacteraemia [Recovered/Resolved]
  - Bacterial infection [Recovered/Resolved]
  - Cellulitis [Recovered/Resolved]
  - Confusional state [Recovered/Resolved]
  - Encephalopathy [Recovered/Resolved]
  - Neutropenia [Recovered/Resolved]
  - Neutropenia [Recovered/Resolved]
  - Perineal infection [Recovered/Resolved]
  - Pyrexia [Recovered/Resolved]
  - Pyrexia [Recovered/Resolved]
  - Pyrexia [Recovered/Resolved]
  - Pyrexia [Recovered/Resolved]
  - Pyrexia [Recovered/Resolved]
  - Sepsis [Recovered/Resolved]
